FAERS Safety Report 21995936 (Version 1)
Quarter: 2023Q1

REPORT INFORMATION
  Report Type: Spontaneous
  Country: US (occurrence: None)
  Receive Date: 20230214
  Receipt Date: 20230214
  Transmission Date: 20230418
  Serious: Yes (Hospitalization)
  Sender: FDA-Public Use
  Company Number: None

PATIENT
  Age: 71 Year
  Sex: Male

DRUGS (1)
  1. AMBRISENTAN [Suspect]
     Active Substance: AMBRISENTAN
     Indication: Pulmonary arterial hypertension
     Dosage: 10MG QD ORAL
     Route: 048
     Dates: start: 20220617

REACTIONS (5)
  - Anaemia [None]
  - Haemorrhage [None]
  - Transfusion [None]
  - Oesophagitis [None]
  - Gastritis [None]

NARRATIVE: CASE EVENT DATE: 20230203
